FAERS Safety Report 10748001 (Version 2)
Quarter: 2015Q2

REPORT INFORMATION
  Report Type: Report from Study
  Country: US (occurrence: None)
  Receive Date: 20150120
  Receipt Date: 20150420
  Transmission Date: 20150821
  Serious: No
  Sender: FDA-Public Use
  Company Number: AEGR001034

PATIENT
  Age: 77 Year
  Sex: Female
  Weight: 81.6 kg

DRUGS (10)
  1. NEURONTIN [Concomitant]
     Active Substance: GABAPENTIN
  2. GLIMEPIRIDE. [Concomitant]
     Active Substance: GLIMEPIRIDE
  3. HYDROXYCHLOROQUINE [Concomitant]
     Active Substance: HYDROXYCHLOROQUINE
  4. IMUD (ISOSORIBE MONOITRATE) [Concomitant]
  5. ASA (ASA) [Concomitant]
  6. DULOXETINE (DULOXETINE) [Concomitant]
     Active Substance: DULOXETINE
  7. NABUMETONE. [Concomitant]
     Active Substance: NABUMETONE
  8. JUXTAPID [Suspect]
     Active Substance: LOMITAPIDE MESYLATE
     Indication: TYPE IIA HYPERLIPIDAEMIA
     Route: 048
     Dates: start: 20141209
  9. PREDNISONE (PREDNISONE ACETATE) [Concomitant]
  10. LOSARTAN/HYDROCHLOROTHIAZIDE (HYDROCHLOROTHIAZIDE, LOSARTAN POTASSIUM) [Concomitant]

REACTIONS (8)
  - Nausea [None]
  - Therapy cessation [None]
  - Eructation [None]
  - Sciatica [None]
  - Constipation [None]
  - Diarrhoea [None]
  - Flatulence [None]
  - Haematocrit decreased [None]

NARRATIVE: CASE EVENT DATE: 20141209
